FAERS Safety Report 5964890-3 (Version None)
Quarter: 2008Q4

REPORT INFORMATION
  Report Type: 
  Country: None (occurrence: None)
  Receive Date: 20081121
  Receipt Date: 20081107
  Transmission Date: 20090506
  Serious: Yes (Hospitalization)
  Sender: FDA-Public Use
  Company Number: 8039322

PATIENT
  Age: 46 Year
  Sex: Male
  Weight: 113.64 kg

DRUGS (13)
  1. KEPPRA [Suspect]
     Indication: CONVULSION
     Dosage: 1500 MG 2/D PO
     Route: 048
     Dates: start: 20011001, end: 20081024
  2. WARFARIN SODIUM [Concomitant]
  3. PAROXETINE HCL [Concomitant]
  4. CRESTOR [Concomitant]
  5. VITAMIN E [Concomitant]
  6. PACERONE [Concomitant]
  7. BENAZEPARIL [Concomitant]
  8. LEVOTHYROXINE SODIUM [Concomitant]
  9. LORAZEPAM [Concomitant]
  10. TRICOR [Concomitant]
  11. CYMBALTA [Concomitant]
  12. BACLOFEN [Concomitant]
  13. MUCINEX [Concomitant]

REACTIONS (7)
  - AGGRESSION [None]
  - APPENDICITIS [None]
  - ECONOMIC PROBLEM [None]
  - SCREAMING [None]
  - SUICIDAL IDEATION [None]
  - THERAPY CESSATION [None]
  - VERBAL ABUSE [None]
